FAERS Safety Report 6883138-9 (Version None)
Quarter: 2010Q3

REPORT INFORMATION
  Report Type: 
  Country: None (occurrence: None)
  Receive Date: 20100729
  Receipt Date: 20100720
  Transmission Date: 20110219
  Serious: Yes (Life-Threatening)
  Sender: FDA-Public Use
  Company Number: BR-PFIZER INC-2010090326

PATIENT
  Age: 47 Year
  Sex: Female
  Weight: 73.923 kg

DRUGS (2)
  1. LIPITOR [Suspect]
     Indication: BLOOD CHOLESTEROL INCREASED
     Dosage: 20 MG, 1X/DAY, 1 TABLET
     Route: 048
     Dates: start: 20100625
  2. BROMAZEPAM [Concomitant]
     Dosage: 3 MG, UNK
     Dates: start: 20070101

REACTIONS (7)
  - ASTHENIA [None]
  - BACK PAIN [None]
  - CHEST PAIN [None]
  - FATIGUE [None]
  - FULL BLOOD COUNT ABNORMAL [None]
  - LIVER DISORDER [None]
  - MYALGIA [None]
